FAERS Safety Report 26028689 (Version 2)
Quarter: 2025Q4

REPORT INFORMATION
  Report Type: Spontaneous
  Country: US (occurrence: US)
  Receive Date: 20251111
  Receipt Date: 20251201
  Transmission Date: 20260117
  Serious: No
  Sender: ROCHE
  Company Number: US-ROCHE-10000426573

PATIENT
  Age: 20 Year
  Sex: Female
  Weight: 61.23 kg

DRUGS (13)
  1. XOLAIR [Suspect]
     Active Substance: OMALIZUMAB
     Indication: Angioedema
     Dosage: DOSE: 300MG/2ML
     Route: 058
     Dates: start: 20241106
  2. XOLAIR [Suspect]
     Active Substance: OMALIZUMAB
  3. FLUOXETINE [Concomitant]
     Active Substance: FLUOXETINE HYDROCHLORIDE
     Indication: Anxiety
     Dates: start: 2025
  4. SERTRALINE [Concomitant]
     Active Substance: SERTRALINE HYDROCHLORIDE
     Indication: Anxiety
     Dates: end: 2025
  5. PROZAC [Concomitant]
     Active Substance: FLUOXETINE HYDROCHLORIDE
  6. FLONASE [Concomitant]
     Active Substance: FLUTICASONE PROPIONATE
  7. EMGALITY [Concomitant]
     Active Substance: GALCANEZUMAB-GNLM
  8. PROAMATINE [Concomitant]
     Active Substance: MIDODRINE HYDROCHLORIDE
  9. REMERON [Concomitant]
     Active Substance: MIRTAZAPINE
  10. SINGULAIR [Concomitant]
     Active Substance: MONTELUKAST SODIUM
  11. INDANET [Concomitant]
  12. ZOLOFT [Concomitant]
     Active Substance: SERTRALINE HYDROCHLORIDE
  13. ZONEGRAN [Concomitant]
     Active Substance: ZONISAMIDE

REACTIONS (5)
  - Product dose omission issue [Unknown]
  - Off label use [Unknown]
  - Maternal exposure before pregnancy [Unknown]
  - Device issue [Unknown]
  - No adverse event [Unknown]

NARRATIVE: CASE EVENT DATE: 20251029
